FAERS Safety Report 4414957-6 (Version None)
Quarter: 2004Q3

REPORT INFORMATION
  Report Type: 
  Country: None (occurrence: None)
  Receive Date: 20040803
  Receipt Date: 20040803
  Transmission Date: 20050211
  Serious: Yes (Hospitalization)
  Sender: FDA-Public Use
  Company Number: None

PATIENT
  Age: 36 Year
  Sex: Female
  Weight: 80 kg

DRUGS (1)
  1. CEFTRIAXONE [Suspect]
     Indication: BRAIN ABSCESS
     Dosage: 2 G IV Q 24H
     Route: 042
     Dates: start: 20040607, end: 20040719

REACTIONS (2)
  - BRAIN ABSCESS [None]
  - HYPOTHALAMO-PITUITARY DISORDERS [None]
